FAERS Safety Report 22162595 (Version 1)
Quarter: 2023Q1

REPORT INFORMATION
  Report Type: Spontaneous
  Country: US (occurrence: US)
  Receive Date: 20230331
  Receipt Date: 20230331
  Transmission Date: 20230417
  Serious: No
  Sender: FDA-Public Use
  Company Number: US-BAYER-2023A043021

PATIENT
  Age: 6 Year
  Sex: Female

DRUGS (2)
  1. CHILDREN ASTEPRO ALLERGY [Suspect]
     Active Substance: AZELASTINE HYDROCHLORIDE
     Indication: Hypersensitivity
     Dosage: 1 SPRAY ON EACH NOSTRIL TWICE A DAY
     Route: 045
  2. CHILDREN ASTEPRO ALLERGY [Suspect]
     Active Substance: AZELASTINE HYDROCHLORIDE
     Indication: Nasopharyngitis

REACTIONS (1)
  - Drug ineffective [Unknown]
